FAERS Safety Report 7353660-X (Version None)
Quarter: 2011Q1

REPORT INFORMATION
  Report Type: 
  Country: None (occurrence: None)
  Receive Date: 20110315
  Receipt Date: 20110307
  Transmission Date: 20110831
  Serious: Yes (Other)
  Sender: FDA-Public Use
  Company Number: DE-B.I. PHARMACEUTICALS,INC./RIDGEFIELD-2011-DE-01535DE

PATIENT
  Age: 56 Year
  Sex: Male
  Weight: 85 kg

DRUGS (2)
  1. STALEVO 100 [Suspect]
     Dosage: DAILY INCREASED
     Route: 048
  2. SIFROL [Suspect]
     Dosage: DAILY INCREASED
     Route: 048

REACTIONS (1)
  - DRUG ADMINISTRATION ERROR [None]
